FAERS Safety Report 18867334 (Version 4)
Quarter: 2021Q2

REPORT INFORMATION
  Report Type: Spontaneous
  Country: US (occurrence: US)
  Receive Date: 20210209
  Receipt Date: 20210412
  Transmission Date: 20210717
  Serious: Yes (Other)
  Sender: FDA-Public Use
  Company Number: US-PFIZER INC-2016228740

PATIENT
  Age: 70 Year
  Sex: Female
  Weight: 107 kg

DRUGS (4)
  1. UROCIT?K [Concomitant]
     Active Substance: POTASSIUM CITRATE
     Dosage: 10 MEQ, 2X/DAY (POTASSIUM CITRATE ER 10 MEQ (UROCIT?K)? 1 B.I.D.(TWICE A DAY))
  2. ALLOPURINOL. [Concomitant]
     Active Substance: ALLOPURINOL
     Dosage: UNK
  3. TOVIAZ [Suspect]
     Active Substance: FESOTERODINE FUMARATE
     Indication: HYPERTONIC BLADDER
     Dosage: 8 MG, DAILY (IN THE EVENING/QUANTITY FOR 90 DAYS: 270)
     Route: 048
     Dates: start: 2015
  4. HCTZ [Concomitant]
     Active Substance: HYDROCHLOROTHIAZIDE
     Dosage: 12.5 MG, DAILY (1 Q (EVERY) AM)

REACTIONS (6)
  - Nephrolithiasis [Recovered/Resolved]
  - Product prescribing error [Unknown]
  - Therapeutic product effect incomplete [Unknown]
  - Kidney infection [Unknown]
  - Ureterolithiasis [Unknown]
  - Hypercalcaemia [Unknown]

NARRATIVE: CASE EVENT DATE: 201806
